FAERS Safety Report 9863697 (Version 2)
Quarter: 2014Q2

REPORT INFORMATION
  Report Type: Spontaneous
  Country: CA (occurrence: CA)
  Receive Date: 20140203
  Receipt Date: 20140410
  Transmission Date: 20141212
  Serious: Yes (Other)
  Sender: FDA-Public Use
  Company Number: CA-ELI_LILLY_AND_COMPANY-CA201401009517

PATIENT
  Age: 24 Year
  Sex: Female
  Weight: 58.96 kg

DRUGS (3)
  1. CYMBALTA [Suspect]
     Indication: PAIN
     Dosage: 60 MG, QD
     Route: 048
     Dates: start: 20131013, end: 20131217
  2. CYMBALTA [Suspect]
     Indication: PAIN
  3. PIP/TAZO [Suspect]
     Indication: OSTEOMYELITIS
     Dosage: UNK, UNKNOWN
     Route: 065
     Dates: start: 201312

REACTIONS (1)
  - Hepatitis [Recovered/Resolved]
